FAERS Safety Report 4334782-4 (Version None)
Quarter: 2004Q2

REPORT INFORMATION
  Report Type: 
  Country: None (occurrence: None)
  Receive Date: 20040407
  Receipt Date: 20040407
  Transmission Date: 20050107
  Serious: No
  Sender: FDA-Public Use
  Company Number: None

PATIENT
  Sex: Female
  Weight: 53 kg

DRUGS (6)
  1. HEPARIN [Suspect]
     Indication: DEEP VEIN THROMBOSIS
     Dosage: 5,000 UNITS Q 12 H SC
     Route: 058
     Dates: start: 20031117, end: 20031126
  2. CEFEPIME [Concomitant]
  3. LORAZEPAM [Concomitant]
  4. METRONIDAZOLE [Concomitant]
  5. RANITIDINE [Concomitant]
  6. VANCOMYCIN [Concomitant]

REACTIONS (3)
  - HEPARIN-INDUCED THROMBOCYTOPENIA [None]
  - ISCHAEMIA [None]
  - PAIN IN EXTREMITY [None]
